FAERS Safety Report 6092519-5 (Version None)
Quarter: 2009Q1

REPORT INFORMATION
  Report Type: 
  Country: None (occurrence: None)
  Receive Date: 20090219
  Receipt Date: 20081110
  Transmission Date: 20090719
  Serious: No
  Sender: FDA-Public Use
  Company Number: WAES 0810USA02137

PATIENT
  Age: 78 Year
  Sex: Male
  Weight: 77.5651 kg

DRUGS (13)
  1. JANUVIA [Suspect]
     Indication: DIABETES MELLITUS
     Dosage: 100 MG/DAILY/PO
     Route: 048
     Dates: start: 20080901
  2. BENADRYL [Concomitant]
  3. LANTUS [Concomitant]
  4. NEXIUM [Concomitant]
  5. PROCARDIA [Concomitant]
  6. ZETIA [Concomitant]
  7. ASPIRIN [Concomitant]
  8. FUROSEMIDE [Concomitant]
  9. ISOSORBIDE [Concomitant]
  10. METFORMIN HCL [Concomitant]
  11. METOPROLOL TARTRATE [Concomitant]
  12. SIMVASTATIN [Concomitant]
  13. WARFARIN SODIUM [Concomitant]

REACTIONS (1)
  - INTERMITTENT CLAUDICATION [None]
